FAERS Safety Report 5273348-9 (Version None)
Quarter: 2007Q1

REPORT INFORMATION
  Report Type: 
  Country: None (occurrence: None)
  Receive Date: 20070319
  Receipt Date: 20070302
  Transmission Date: 20070707
  Serious: Yes (Death, Hospitalization)
  Sender: FDA-Public Use
  Company Number: PAR_1417_2007

PATIENT
  Age: 38 Year
  Sex: Male

DRUGS (3)
  1. IBUPROFEN [Suspect]
     Dosage: DF PO
     Route: 048
  2. ACETAMINOPHEN [Suspect]
     Dosage: 10 G PO
     Route: 048
  3. SALICYLATES [Suspect]
     Dosage: DF PO
     Route: 048

REACTIONS (3)
  - HEPATOTOXICITY [None]
  - OVERDOSE [None]
  - PROTHROMBIN TIME PROLONGED [None]
